FAERS Safety Report 8948394 (Version 2)
Quarter: 2013Q1

REPORT INFORMATION
  Report Type: Spontaneous
  Country: US (occurrence: None)
  Receive Date: 20121126
  Receipt Date: 20121205
  Transmission Date: 20140127
  Serious: Yes (Other)
  Sender: FDA-Public Use
  Company Number: 2012/167

PATIENT
  Age: 42 Year
  Sex: Male
  Weight: 90.72 kg

DRUGS (4)
  1. LEVETIRACETAM [Suspect]
     Indication: CONVULSION
     Dosage: DIVIDED IN 4 DOSE
     Route: 048
  2. LEVETIRACETAM [Suspect]
     Dosage: 3750  MG  QD  +  ORAL
  3. FELBAMATE [Concomitant]
  4. PREGABALIN (LYRICA) [Concomitant]

REACTIONS (2)
  - Convulsion [None]
  - Product substitution issue [None]
